FAERS Safety Report 8779831 (Version 1)
Quarter: 2012Q4

REPORT INFORMATION
  Report Type: Report from Study
  Country: HU (occurrence: HU)
  Receive Date: 20120912
  Receipt Date: 20120912
  Transmission Date: 20130627
  Serious: Yes (Death, Other)
  Sender: FDA-Public Use
  Company Number: HU-ROCHE-1122817

PATIENT
  Sex: Female

DRUGS (2)
  1. XELODA [Suspect]
     Indication: BREAST CANCER
     Route: 048
     Dates: start: 20080922, end: 200903
  2. XELODA [Suspect]
     Indication: METASTASES TO BONE

REACTIONS (4)
  - Death [Fatal]
  - Full blood count abnormal [Unknown]
  - Drug ineffective [Unknown]
  - Metastasis [Unknown]
